FAERS Safety Report 7135658-X (Version None)
Quarter: 2010Q4

REPORT INFORMATION
  Report Type: 
  Country: None (occurrence: None)
  Receive Date: 20101203
  Receipt Date: 20101118
  Transmission Date: 20110411
  Serious: Yes (Hospitalization)
  Sender: FDA-Public Use
  Company Number: DE-GENENTECH-306689

PATIENT
  Sex: Male
  Weight: 77 kg

DRUGS (8)
  1. RITUXIMAB [Suspect]
     Indication: CHRONIC LYMPHOCYTIC LEUKAEMIA
     Dosage: 147 MG, Q28D
     Route: 042
     Dates: start: 20100812, end: 20100907
  2. RITUXIMAB [Suspect]
     Dosage: UNK
     Route: 042
     Dates: start: 20100927
  3. CHLORAMBUCIL [Suspect]
     Indication: CHRONIC LYMPHOCYTIC LEUKAEMIA
     Dosage: 42 MG, DAYS 1+15
     Route: 048
     Dates: start: 20100812, end: 20100907
  4. CHLORAMBUCIL [Suspect]
     Dosage: UNK
     Route: 048
     Dates: end: 20100927
  5. ALLOPURINOL [Concomitant]
     Indication: PRODUCT USED FOR UNKNOWN INDICATION
     Dosage: UNK
     Dates: start: 20100811, end: 20100915
  6. COTRIM [Concomitant]
     Indication: PRODUCT USED FOR UNKNOWN INDICATION
     Dosage: UNK
     Dates: start: 20100806, end: 20100915
  7. MCP [Concomitant]
     Indication: PRODUCT USED FOR UNKNOWN INDICATION
     Dosage: 30 GTT, UNK
     Dates: start: 20100812, end: 20100915
  8. BINOCRIT [Concomitant]
     Indication: PRODUCT USED FOR UNKNOWN INDICATION
     Dosage: 30000 IU, 1/WEEK
     Dates: start: 20100826, end: 20100904

REACTIONS (1)
  - DYSPHAGIA [None]
